FAERS Safety Report 7323047-4 (Version None)
Quarter: 2011Q1

REPORT INFORMATION
  Report Type: 
  Country: None (occurrence: None)
  Receive Date: 20110301
  Receipt Date: 20110224
  Transmission Date: 20110831
  Serious: Yes (Other)
  Sender: FDA-Public Use
  Company Number: DE-PFIZER INC-2011041214

PATIENT
  Age: 65 Year
  Sex: Male

DRUGS (2)
  1. ALCOHOL [Suspect]
     Dosage: UNK
  2. SORTIS [Suspect]
     Dosage: 80 MG, UNK

REACTIONS (1)
  - APNOEA [None]
